FAERS Safety Report 5381653-0 (Version None)
Quarter: 2007Q3

REPORT INFORMATION
  Report Type: 
  Country: None (occurrence: None)
  Receive Date: 20070709
  Receipt Date: 20070627
  Transmission Date: 20080115
  Serious: Yes (Hospitalization)
  Sender: FDA-Public Use
  Company Number: JP-AMGEN-US231730

PATIENT
  Sex: Male

DRUGS (2)
  1. ENBREL [Suspect]
     Indication: RHEUMATOID ARTHRITIS
     Dosage: 25 MG / INJECTION; FREQUENCY NOT SPECIFIED
     Route: 058
     Dates: start: 20070213, end: 20070531
  2. PROGRAF [Suspect]
     Dosage: NOT SPECIFIED
     Route: 048

REACTIONS (1)
  - TUBERCULOSIS [None]
